FAERS Safety Report 12457142 (Version 2)
Quarter: 2016Q3

REPORT INFORMATION
  Report Type: Spontaneous
  Country: FR (occurrence: FR)
  Receive Date: 20160610
  Receipt Date: 20160726
  Transmission Date: 20161109
  Serious: Yes (Death, Hospitalization)
  Sender: FDA-Public Use
  Company Number: PHHY2016FR080169

PATIENT
  Age: 63 Year
  Sex: Male
  Weight: 70 kg

DRUGS (6)
  1. ENTRESTO [Suspect]
     Active Substance: SACUBITRIL\VALSARTAN
     Indication: CARDIAC FAILURE
     Dosage: 50 MG, BID
     Route: 048
     Dates: start: 20160504
  2. LASILIX [Concomitant]
     Active Substance: FUROSEMIDE
     Indication: PRODUCT USED FOR UNKNOWN INDICATION
     Dosage: 40 MG, QD
     Dates: start: 201305
  3. INSPRA [Concomitant]
     Active Substance: EPLERENONE
     Indication: PRODUCT USED FOR UNKNOWN INDICATION
     Dosage: 12.5 MG, QOD
     Route: 048
     Dates: start: 20130602
  4. KARDEGIC [Concomitant]
     Active Substance: ASPIRIN LYSINE
     Indication: PRODUCT USED FOR UNKNOWN INDICATION
     Dosage: 75 MG, QD
     Route: 048
     Dates: start: 201306
  5. ATORVASTATIN [Concomitant]
     Active Substance: ATORVASTATIN
     Indication: PRODUCT USED FOR UNKNOWN INDICATION
     Dosage: 20 MG, QD
     Route: 048
     Dates: start: 201506
  6. BISOPROLOL [Concomitant]
     Active Substance: BISOPROLOL
     Indication: PRODUCT USED FOR UNKNOWN INDICATION
     Dosage: 2.5 MG, UNK
     Route: 048
     Dates: start: 201306

REACTIONS (16)
  - Cardiogenic shock [Fatal]
  - Chills [Fatal]
  - Pyrexia [Fatal]
  - Anuria [Fatal]
  - Cardio-respiratory arrest [Fatal]
  - Acute kidney injury [Fatal]
  - Septic shock [Fatal]
  - Abdominal pain [Fatal]
  - Blood pressure abnormal [Unknown]
  - Haemoptysis [Fatal]
  - Hyperkalaemia [Unknown]
  - Diarrhoea [Fatal]
  - Pulmonary oedema [Fatal]
  - Inflammation [Unknown]
  - Tongue dry [Unknown]
  - Heart rate abnormal [Unknown]

NARRATIVE: CASE EVENT DATE: 20160512
